FAERS Safety Report 20869803 (Version 1)
Quarter: 2022Q2

REPORT INFORMATION
  Report Type: Spontaneous
  Country: US (occurrence: US)
  Receive Date: 20220525
  Receipt Date: 20220525
  Transmission Date: 20220721
  Serious: No
  Sender: FDA-Public Use
  Company Number: US-BEIGENE USA INC-BGN-2022-005685

PATIENT

DRUGS (4)
  1. BRUKINSA [Suspect]
     Active Substance: ZANUBRUTINIB
     Indication: Non-Hodgkin^s lymphoma
     Dosage: 4 CAPSULES BY MOUTH DAILY
     Route: 048
     Dates: start: 202203
  2. BRUKINSA [Suspect]
     Active Substance: ZANUBRUTINIB
     Dosage: 1 CAPSULE IN THE MORNING AND EVENING
     Route: 048
  3. KETOCONAZOLE [Concomitant]
     Active Substance: KETOCONAZOLE
     Indication: Seborrhoeic dermatitis
     Dosage: 2% CREAM
  4. KETOCONAZOLE [Concomitant]
     Active Substance: KETOCONAZOLE
     Dosage: 2% SHAMPOO

REACTIONS (3)
  - Skin reaction [Unknown]
  - Rash [Unknown]
  - Underdose [Unknown]
